FAERS Safety Report 4410609-7 (Version None)
Quarter: 2004Q3

REPORT INFORMATION
  Report Type: 
  Country: None (occurrence: None)
  Receive Date: 20040728
  Receipt Date: 20040728
  Transmission Date: 20050211
  Serious: Yes (Life-Threatening, Hospitalization)
  Sender: FDA-Public Use
  Company Number: None

PATIENT
  Age: 63 Year
  Sex: Male

DRUGS (8)
  1. METOLAZONE [Suspect]
     Dosage: 5 MG PO QD  CHRONIC
     Route: 048
  2. LASIX [Suspect]
     Dosage: 80 MGBID CHRONIC
  3. LOSARTAN POTASSIUM [Suspect]
     Dosage: 50MG/PO QD
     Route: 048
  4. POTASSIUM [Concomitant]
  5. DIGOXIN [Concomitant]
  6. IMDUR [Concomitant]
  7. TOPROL-XL [Concomitant]
  8. FLOMAX [Concomitant]

REACTIONS (3)
  - BLOOD POTASSIUM DECREASED [None]
  - VENTRICULAR FIBRILLATION [None]
  - VENTRICULAR TACHYCARDIA [None]
